FAERS Safety Report 8761045 (Version 1)
Quarter: 2012Q4

REPORT INFORMATION
  Report Type: 
  Country: US (occurrence: US)
  Receive Date: 20120830
  Receipt Date: 20120830
  Transmission Date: 20130627
  Serious: Yes (Hospitalization)
  Sender: FDA-Public Use
  Company Number: US-NOVOPROD-358837

PATIENT
  Age: 60 Year
  Sex: Female

DRUGS (2)
  1. NOVOLOG [Suspect]
     Indication: TYPE 2 DIABETES MELLITUS
     Route: 058
  2. LANTUS [Suspect]
     Indication: TYPE 2 DIABETES MELLITUS
     Dosage: 15-18 U, bid
     Route: 058
     Dates: start: 201207

REACTIONS (2)
  - Cerebrovascular accident [Unknown]
  - Blood glucose abnormal [Unknown]
